FAERS Safety Report 7678313-X (Version None)
Quarter: 2011Q3

REPORT INFORMATION
  Report Type: 
  Country: None (occurrence: None)
  Receive Date: 20110811
  Receipt Date: 20110802
  Transmission Date: 20111222
  Serious: Yes (Other)
  Sender: FDA-Public Use
  Company Number: PHHY2011JP70689

PATIENT
  Age: 91 Year
  Sex: Female

DRUGS (1)
  1. EXELON [Suspect]
     Indication: DEMENTIA
     Dosage: UNK UKN, UNK
     Route: 062
     Dates: start: 20110727, end: 20110729

REACTIONS (5)
  - DELIRIUM [None]
  - ABNORMAL BEHAVIOUR [None]
  - INCONTINENCE [None]
  - PORIOMANIA [None]
  - SLEEP DISORDER [None]
